FAERS Safety Report 11149686 (Version 1)
Quarter: 2015Q2

REPORT INFORMATION
  Report Type: Spontaneous
  Country: US (occurrence: US)
  Receive Date: 20150529
  Receipt Date: 20150529
  Transmission Date: 20150821
  Serious: No
  Sender: FDA-Public Use
  Company Number: US-SA-2015SA040794

PATIENT
  Age: 53 Year
  Sex: Female
  Weight: 52.1 kg

DRUGS (6)
  1. RELPAX [Concomitant]
     Active Substance: ELETRIPTAN HYDROBROMIDE
  2. TOPIRAMATE. [Concomitant]
     Active Substance: TOPIRAMATE
  3. LAMICTAL [Concomitant]
     Active Substance: LAMOTRIGINE
     Dosage: 3 TABLETS DAILY
  4. NAPROXEN. [Concomitant]
     Active Substance: NAPROXEN
     Dosage: FREQUENCY: TWICE A DAY AS NEEDED
  5. ZYRTEC [Concomitant]
     Active Substance: CETIRIZINE HYDROCHLORIDE
  6. CERDELGA [Suspect]
     Active Substance: ELIGLUSTAT
     Indication: GAUCHER^S DISEASE
     Route: 048
     Dates: start: 20150312, end: 20150324

REACTIONS (5)
  - Rash [Not Recovered/Not Resolved]
  - Erythema [Unknown]
  - Ocular hyperaemia [Unknown]
  - Urticaria [Unknown]
  - Nodule [Unknown]

NARRATIVE: CASE EVENT DATE: 20150317
